FAERS Safety Report 10458137 (Version 3)
Quarter: 2018Q1

REPORT INFORMATION
  Report Type: Report from Study
  Country: US (occurrence: US)
  Receive Date: 20140917
  Receipt Date: 20180330
  Transmission Date: 20180508
  Serious: Yes (Other)
  Sender: FDA-Public Use
  Company Number: US-ROCHE-1461628

PATIENT
  Age: 12 Year
  Sex: Male
  Weight: 32.6 kg

DRUGS (5)
  1. MOTRIN [Concomitant]
     Active Substance: IBUPROFEN
     Route: 048
  2. IBUPROFEN. [Concomitant]
     Active Substance: IBUPROFEN
     Route: 048
  3. NUTROPIN AQ [Suspect]
     Active Substance: SOMATROPIN
     Indication: GROWTH HORMONE DEFICIENCY
     Route: 058
     Dates: start: 20120923
  4. NUTROPIN AQ [Suspect]
     Active Substance: SOMATROPIN
     Indication: BODY HEIGHT BELOW NORMAL
     Route: 058
     Dates: start: 201205
  5. TOPAMAX [Concomitant]
     Active Substance: TOPIRAMATE
     Route: 048

REACTIONS (8)
  - Fatigue [Unknown]
  - Blood glucose increased [Unknown]
  - Blood urea increased [Not Recovered/Not Resolved]
  - Insulin-like growth factor decreased [Unknown]
  - Muscle spasms [Unknown]
  - Growth retardation [Unknown]
  - Blood thyroid stimulating hormone increased [Unknown]
  - Headache [Unknown]

NARRATIVE: CASE EVENT DATE: 20150213
